FAERS Safety Report 8207855-3 (Version None)
Quarter: 2012Q1

REPORT INFORMATION
  Report Type: 
  Country: None (occurrence: None)
  Receive Date: 20120314
  Receipt Date: 20120306
  Transmission Date: 20120608
  Serious: Yes (Hospitalization)
  Sender: FDA-Public Use
  Company Number: US-JNJFOC-20120303952

PATIENT
  Age: 70 Year
  Sex: Male

DRUGS (4)
  1. XARELTO [Suspect]
     Indication: KNEE ARTHROPLASTY
     Route: 048
  2. CHOLESTEROL LOWERING MEDICATION [Concomitant]
  3. OXYCONTIN [Concomitant]
  4. UNSPECIFIED BLOOD PRESSURE MEDS [Concomitant]

REACTIONS (1)
  - PULMONARY EMBOLISM [None]
